FAERS Safety Report 17028121 (Version 1)
Quarter: 2019Q4

REPORT INFORMATION
  Report Type: Spontaneous
  Country: BR (occurrence: BR)
  Receive Date: 20191113
  Receipt Date: 20191113
  Transmission Date: 20200122
  Serious: Yes (Other)
  Sender: FDA-Public Use
  Company Number: BR-BIOMARINAP-BR-2019-126854

PATIENT

DRUGS (1)
  1. NAGLAZYME [Suspect]
     Active Substance: GALSULFASE
     Indication: MUCOPOLYSACCHARIDOSIS VI
     Dosage: UNK
     Route: 065
     Dates: start: 20080505

REACTIONS (4)
  - Aortic valve incompetence [Unknown]
  - Spinal cord compression [Unknown]
  - Disease progression [Unknown]
  - Mitral valve incompetence [Unknown]
